FAERS Safety Report 24442063 (Version 2)
Quarter: 2024Q4

REPORT INFORMATION
  Report Type: Report from Study
  Country: US (occurrence: US)
  Receive Date: 20241016
  Receipt Date: 20241017
  Transmission Date: 20250115
  Serious: No
  Sender: ROCHE
  Company Number: US-ROCHE-3521767

PATIENT
  Age: 22 Year
  Sex: Male

DRUGS (9)
  1. HEMLIBRA [Suspect]
     Active Substance: EMICIZUMAB-KXWH
     Indication: Factor VIII deficiency
     Dosage: STRENGTH: 105MG/0.7ML, DATE OF TREATMENT: 04/MAR/2024
     Route: 058
     Dates: start: 20210928
  2. HEMLIBRA [Suspect]
     Active Substance: EMICIZUMAB-KXWH
     Route: 058
     Dates: start: 20210930
  3. HEMLIBRA [Suspect]
     Active Substance: EMICIZUMAB-KXWH
     Route: 058
     Dates: start: 20210930
  4. HEMLIBRA [Suspect]
     Active Substance: EMICIZUMAB-KXWH
     Route: 058
     Dates: start: 20210930
  5. TYLENOL [Concomitant]
     Active Substance: ACETAMINOPHEN
  6. NOVOEIGHT [Concomitant]
     Active Substance: ANTIHEMOPHILIC FACTOR, HUMAN RECOMBINANT
  7. CELEBREX [Concomitant]
     Active Substance: CELECOXIB
  8. LYSTEDA [Concomitant]
     Active Substance: TRANEXAMIC ACID
  9. AMICAR [Concomitant]
     Active Substance: AMINOCAPROIC ACID

REACTIONS (11)
  - Haemarthrosis [Unknown]
  - Traumatic haemorrhage [Unknown]
  - Haemorrhage [Unknown]
  - Limb injury [Unknown]
  - White blood cell count increased [Unknown]
  - Lymphocyte count decreased [Unknown]
  - Neutrophil count increased [Unknown]
  - Monocyte count increased [Unknown]
  - Off label use [Unknown]
  - Pain [Unknown]
  - Factor VIII activity decreased [Unknown]
